FAERS Safety Report 7478309-7 (Version None)
Quarter: 2011Q2

REPORT INFORMATION
  Report Type: 
  Country: None (occurrence: None)
  Receive Date: 20110513
  Receipt Date: 20110503
  Transmission Date: 20111010
  Serious: Yes (Other)
  Sender: FDA-Public Use
  Company Number: US-ASTRAZENECA-2011SE06370

PATIENT
  Age: 53 Year
  Sex: Male
  Weight: 68.9 kg

DRUGS (4)
  1. COMBIVIR [Concomitant]
     Indication: HIV TEST POSITIVE
  2. SUSTIVA [Concomitant]
     Indication: HIV TEST POSITIVE
  3. NEXIUM [Suspect]
     Indication: GASTRITIS
     Route: 048
     Dates: start: 20080201
  4. CRESTOR [Suspect]
     Indication: DYSLIPIDAEMIA
     Route: 048
     Dates: start: 20091201

REACTIONS (3)
  - HIV TEST POSITIVE [None]
  - HYPERTENSION [None]
  - DEPRESSION [None]
